FAERS Safety Report 10241929 (Version 1)
Quarter: 2014Q2

REPORT INFORMATION
  Report Type: Spontaneous
  Country: CN (occurrence: CN)
  Receive Date: 20140617
  Receipt Date: 20140617
  Transmission Date: 20141212
  Serious: Yes (Hospitalization)
  Sender: FDA-Public Use
  Company Number: CN-GLAXOSMITHKLINE-B1004472A

PATIENT
  Age: 23 Year
  Sex: Male
  Weight: 72 kg

DRUGS (1)
  1. BACTROBAN [Suspect]
     Indication: ILL-DEFINED DISORDER
     Dosage: .2G TWICE PER DAY
     Route: 061
     Dates: start: 20130401, end: 20130402

REACTIONS (5)
  - Rash [Recovering/Resolving]
  - Dermatitis contact [Recovering/Resolving]
  - Rash maculo-papular [Recovering/Resolving]
  - Rash pustular [Recovering/Resolving]
  - Concomitant disease aggravated [Recovering/Resolving]
